FAERS Safety Report 4334939-2 (Version None)
Quarter: 2004Q2

REPORT INFORMATION
  Report Type: 
  Country: None (occurrence: None)
  Receive Date: 20040408
  Receipt Date: 20040211
  Transmission Date: 20050107
  Serious: Yes (Other)
  Sender: FDA-Public Use
  Company Number: PHNU2004DE00859

PATIENT
  Age: 53 Year
  Sex: Female

DRUGS (2)
  1. SANDIMMUNE [Suspect]
     Indication: LIVER TRANSPLANT
     Route: 048
     Dates: start: 19960101
  2. PRAVASIN [Concomitant]

REACTIONS (3)
  - PAPILLOEDEMA [None]
  - VISUAL ACUITY REDUCED [None]
  - VISUAL FIELD DEFECT [None]
